FAERS Safety Report 12436612 (Version 1)
Quarter: 2016Q2

REPORT INFORMATION
  Report Type: Spontaneous
  Country: IL (occurrence: IL)
  Receive Date: 20160606
  Receipt Date: 20160606
  Transmission Date: 20160815
  Serious: Yes (Hospitalization)
  Sender: FDA-Public Use
  Company Number: IL-SHIRE-IL201606621

PATIENT
  Age: 4 Year
  Sex: Male
  Weight: 17.5 kg

DRUGS (1)
  1. ELAPRASE [Suspect]
     Active Substance: IDURSULFASE
     Indication: PRODUCT USED FOR UNKNOWN INDICATION
     Dosage: 6 MG (1 VIAL (6MG) ALTERNATED WITH 2 VIALS (12MG)), 1X/WEEK
     Route: 041
     Dates: start: 2013

REACTIONS (3)
  - Tonsillar hypertrophy [Unknown]
  - Testicular disorder [Unknown]
  - Ear infection [Unknown]
